FAERS Safety Report 8037865-0 (Version None)
Quarter: 2012Q1

REPORT INFORMATION
  Report Type: 
  Country: None (occurrence: None)
  Receive Date: 20120111
  Receipt Date: 20120103
  Transmission Date: 20120608
  Serious: Yes (Hospitalization, Other)
  Sender: FDA-Public Use
  Company Number: PHHY2012FR001231

PATIENT
  Age: 52 Year
  Sex: Female
  Weight: 67.6 kg

DRUGS (10)
  1. PERINDOPRIL ERBUMINE [Concomitant]
     Dosage: 10 MG, UNK
     Route: 048
  2. SIMVASTATIN [Suspect]
     Indication: DIABETIC DYSLIPIDAEMIA
     Dosage: UNK
     Dates: end: 20110907
  3. ASPIRIN [Concomitant]
     Dosage: 75 MG, UNK
  4. METFORMIN HYDROCHLORIDE [Suspect]
     Indication: DIABETES MELLITUS
     Dosage: 1 DF, BID
     Route: 048
     Dates: start: 20100708, end: 20110907
  5. VALPROIC ACID [Suspect]
     Indication: ANXIETY
     Dosage: UNKNOWN DAILY DOSE
     Route: 048
     Dates: end: 20110907
  6. KETOPROFEN [Suspect]
  7. LANSOPRAZOLE [Concomitant]
     Dosage: 15 MG, UNK
     Route: 048
  8. ACARBOSE [Suspect]
     Indication: DIABETES MELLITUS
     Dosage: 1 DF, TID
     Dates: start: 20110524, end: 20110907
  9. BISOPROLOL FUMARATE [Concomitant]
     Dosage: 2.5 MG, UNK
     Route: 048
  10. EFFEXOR [Concomitant]
     Dosage: 75 MG, UNK
     Route: 048

REACTIONS (3)
  - DIABETES MELLITUS INADEQUATE CONTROL [None]
  - CYTOLYTIC HEPATITIS [None]
  - HYPERSENSITIVITY [None]
